FAERS Safety Report 17027152 (Version 1)
Quarter: 2019Q4

REPORT INFORMATION
  Report Type: Report from Study
  Country: RU (occurrence: RU)
  Receive Date: 20191113
  Receipt Date: 20191113
  Transmission Date: 20200122
  Serious: Yes (Other)
  Sender: FDA-Public Use
  Company Number: RU-ASTRAZENECA-2019SF59167

PATIENT
  Age: 70 Year
  Sex: Female
  Weight: 93 kg

DRUGS (6)
  1. CONCOR [Concomitant]
     Active Substance: BISOPROLOL FUMARATE
  2. HYPOSART [Concomitant]
  3. FORXIGA [Suspect]
     Active Substance: DAPAGLIFLOZIN
     Indication: TYPE 2 DIABETES MELLITUS
     Route: 048
     Dates: start: 20191105
  4. INDAPAMIDE. [Concomitant]
     Active Substance: INDAPAMIDE
  5. INSULIN [Concomitant]
     Active Substance: INSULIN NOS
  6. FORXIGA [Suspect]
     Active Substance: DAPAGLIFLOZIN
     Indication: TYPE 2 DIABETES MELLITUS
     Route: 048
     Dates: start: 20191004, end: 20191101

REACTIONS (4)
  - Intentional dose omission [Recovered/Resolved]
  - Platelet count increased [Not Recovered/Not Resolved]
  - Ketonuria [Not Recovered/Not Resolved]
  - Glycosuria [Not Recovered/Not Resolved]

NARRATIVE: CASE EVENT DATE: 20191101
